FAERS Safety Report 12795453 (Version 2)
Quarter: 2016Q4

REPORT INFORMATION
  Report Type: Report from Study
  Country: None (occurrence: BR)
  Receive Date: 20160929
  Receipt Date: 20161004
  Transmission Date: 20170207
  Serious: Yes (Other)
  Sender: FDA-Public Use
  Company Number: BR-ABBVIE-16K-020-1737742-00

PATIENT
  Sex: Male

DRUGS (2)
  1. HUMIRA [Suspect]
     Active Substance: ADALIMUMAB
     Indication: CROHN^S DISEASE
     Route: 058
     Dates: start: 20130515, end: 201602
  2. HUMIRA [Suspect]
     Active Substance: ADALIMUMAB
     Route: 058
     Dates: start: 201609

REACTIONS (8)
  - Intestinal resection [Unknown]
  - Haemorrhoids [Unknown]
  - Appendicectomy [Unknown]
  - Vesical fistula [Unknown]
  - Bladder perforation [Unknown]
  - Ileostomy [Unknown]
  - Cholecystectomy [Unknown]
  - Anal fissure [Unknown]
